FAERS Safety Report 9308804 (Version 2)
Quarter: 2013Q3

REPORT INFORMATION
  Report Type: Spontaneous
  Country: IN (occurrence: IN)
  Receive Date: 20130524
  Receipt Date: 20130701
  Transmission Date: 20140515
  Serious: Yes (Hospitalization, Other)
  Sender: FDA-Public Use
  Company Number: PHHY2013IN050622

PATIENT
  Age: 2 Year
  Sex: Male

DRUGS (2)
  1. MIDAZOLAM [Suspect]
     Indication: SEDATION
     Dosage: 1 MG, PARENTERAL PREPARATION (0.1 MG/KG)
     Route: 048
  2. AZITHROMYCIN [Interacting]
     Indication: PYREXIA
     Dosage: 200 MG, QD
     Route: 048

REACTIONS (4)
  - Sedation [Recovered/Resolved]
  - Somnolence [Recovered/Resolved]
  - Drug interaction [Unknown]
  - Incorrect route of drug administration [Unknown]
